FAERS Safety Report 20317937 (Version 3)
Quarter: 2022Q1

REPORT INFORMATION
  Report Type: Spontaneous
  Country: FR (occurrence: FR)
  Receive Date: 20220110
  Receipt Date: 20220308
  Transmission Date: 20220423
  Serious: Yes (Other)
  Sender: FDA-Public Use
  Company Number: FR-002147023-NVSC2021FR295825

PATIENT
  Age: 64 Year
  Sex: Female
  Weight: 60 kg

DRUGS (3)
  1. PACLITAXEL [Suspect]
     Active Substance: PACLITAXEL
     Indication: Non-small cell lung cancer
     Dosage: 200 MILLIGRAM/SQ. METER  ( 1ST LINE TREATMENT )
     Route: 042
     Dates: start: 202011, end: 202106
  2. CARBOPLATIN [Suspect]
     Active Substance: CARBOPLATIN
     Indication: Non-small cell lung cancer
     Dosage: UNK, (UNK,1ST LINE TREATMENT (5 AUC) )
     Route: 065
     Dates: start: 202011, end: 202107
  3. PEMBROLIZUMAB [Suspect]
     Active Substance: PEMBROLIZUMAB
     Indication: Non-small cell lung cancer
     Dosage: 200 MILLIGRAM (1ST LINE TREATMENT)
     Route: 042
     Dates: start: 202011, end: 202107

REACTIONS (5)
  - Malignant neoplasm progression [Unknown]
  - Non-small cell lung cancer [Unknown]
  - Bone lesion [Unknown]
  - Metabolic disorder [Unknown]
  - Hypermetabolism [Unknown]

NARRATIVE: CASE EVENT DATE: 20210601
